FAERS Safety Report 9958358 (Version 1)
Quarter: 2014Q1

REPORT INFORMATION
  Report Type: Spontaneous
  Country: FR (occurrence: FR)
  Receive Date: 20140305
  Receipt Date: 20140305
  Transmission Date: 20141002
  Serious: Yes (Death, Other)
  Sender: FDA-Public Use
  Company Number: FR-AMGEN-FRASP2014015304

PATIENT
  Age: 79 Year
  Sex: Male

DRUGS (11)
  1. ENBREL [Suspect]
     Indication: RHEUMATOID ARTHRITIS
     Dosage: 25 MG, WEEKLY
     Route: 065
     Dates: start: 20120726, end: 201311
  2. PREDNISONE [Suspect]
     Indication: PRODUCT USED FOR UNKNOWN INDICATION
     Dosage: UNK
     Route: 048
  3. CODOLIPRANE [Concomitant]
     Dosage: UNK
     Route: 048
  4. VOLTARENE                          /00372302/ [Concomitant]
     Dosage: UNK
     Route: 048
  5. KARDEGIC [Concomitant]
     Dosage: 75 MG, 1X/DAY
     Route: 048
  6. TAHOR [Concomitant]
     Dosage: 10 MG, 1X/DAY
     Route: 048
  7. TRANXENE [Concomitant]
     Dosage: 10 MG, 1X/DAY
     Route: 048
  8. TRANSULOSE [Concomitant]
     Dosage: UNK
     Route: 048
  9. FORLAX                             /00754501/ [Concomitant]
     Dosage: UNK
     Route: 048
  10. DEXERYL                            /01579901/ [Concomitant]
     Dosage: UNK
  11. UVEDOSE [Concomitant]
     Dosage: UNK
     Route: 048

REACTIONS (2)
  - Fall [Fatal]
  - Malignant melanoma [Not Recovered/Not Resolved]
